FAERS Safety Report 17355274 (Version 2)
Quarter: 2020Q1

REPORT INFORMATION
  Report Type: Report from Study
  Country: US (occurrence: US)
  Receive Date: 20200131
  Receipt Date: 20200224
  Transmission Date: 20200409
  Serious: Yes (Hospitalization, Other)
  Sender: FDA-Public Use
  Company Number: NVSC2020US017563

PATIENT
  Age: 71 Year
  Sex: Female
  Weight: 83.8 kg

DRUGS (5)
  1. ACYCLOVIR. [Concomitant]
     Active Substance: ACYCLOVIR
     Indication: PROPHYLAXIS
     Dosage: 800 MG
     Route: 065
     Dates: start: 20191209, end: 20191230
  2. FLUCONAZOLE. [Concomitant]
     Active Substance: FLUCONAZOLE
     Indication: PROPHYLAXIS
     Dosage: 400 MG
     Route: 065
     Dates: start: 20191210, end: 20191230
  3. ATOVAQUONE. [Concomitant]
     Active Substance: ATOVAQUONE
     Indication: PROPHYLAXIS
     Dosage: 1500 MG
     Route: 065
     Dates: start: 20191210, end: 20191230
  4. LEVOFLOXACIN. [Concomitant]
     Active Substance: LEVOFLOXACIN
     Indication: PROPHYLAXIS
     Dosage: 500 MG
     Route: 065
     Dates: start: 20191210, end: 20191230
  5. KYMRIAH [Suspect]
     Active Substance: TISAGENLECLEUCEL
     Indication: DIFFUSE LARGE B-CELL LYMPHOMA
     Dosage: 1.4 X10^8 POSITIVE VIABLE T CELLS
     Route: 042
     Dates: start: 20191209

REACTIONS (18)
  - Fall [Unknown]
  - Scratch [Unknown]
  - Cellulitis [Recovered/Resolved]
  - Dysarthria [Unknown]
  - Aphasia [Unknown]
  - Dysphagia [Unknown]
  - Haematoma [Recovered/Resolved]
  - Musculoskeletal chest pain [Unknown]
  - Loss of consciousness [Unknown]
  - Discharge [Unknown]
  - Pain [Unknown]
  - Gait disturbance [Unknown]
  - Contusion [Not Recovered/Not Resolved]
  - Neurotoxicity [Recovered/Resolved with Sequelae]
  - Wound [Unknown]
  - Erythema [Unknown]
  - Back pain [Unknown]
  - Lymphocytosis [Unknown]

NARRATIVE: CASE EVENT DATE: 20191230
